FAERS Safety Report 6101817-8 (Version None)
Quarter: 2009Q1

REPORT INFORMATION
  Report Type: 
  Country: None (occurrence: None)
  Receive Date: 20090304
  Receipt Date: 20030522
  Transmission Date: 20090719
  Serious: No
  Sender: FDA-Public Use
  Company Number: US-ABBOTT-08P-163-0458307-00

PATIENT
  Age: 22 Year
  Sex: Male

DRUGS (1)
  1. VALPROATE SODIUM [Suspect]
     Indication: BIPOLAR DISORDER
     Route: 048

REACTIONS (4)
  - AMMONIA INCREASED [None]
  - CONFUSIONAL STATE [None]
  - FLAT AFFECT [None]
  - HEADACHE [None]
